FAERS Safety Report 16204357 (Version 3)
Quarter: 2019Q3

REPORT INFORMATION
  Report Type: Spontaneous
  Country: JP (occurrence: JP)
  Receive Date: 20190416
  Receipt Date: 20190821
  Transmission Date: 20191004
  Serious: Yes (Life-Threatening, Hospitalization, Other)
  Sender: FDA-Public Use
  Company Number: JP-ASTRAZENECA-2019SE40032

PATIENT
  Age: 30426 Day
  Sex: Male
  Weight: 57 kg

DRUGS (9)
  1. IRESSA [Suspect]
     Active Substance: GEFITINIB
     Indication: LUNG ADENOCARCINOMA
     Route: 048
     Dates: start: 20160212, end: 20180710
  2. AVOLVE [Suspect]
     Active Substance: DUTASTERIDE
     Indication: BENIGN PROSTATIC HYPERPLASIA
     Route: 048
     Dates: start: 20161219
  3. HERBESSER [Suspect]
     Active Substance: DILTIAZEM HYDROCHLORIDE
     Indication: ATRIAL FIBRILLATION
     Route: 048
  4. GOSHAJINKIGAN [Concomitant]
     Active Substance: HERBALS
     Route: 048
     Dates: start: 20170829, end: 20190305
  5. MEROPENEM. [Concomitant]
     Active Substance: MEROPENEM
  6. TAGRISSO [Suspect]
     Active Substance: OSIMERTINIB
     Indication: NON-SMALL CELL LUNG CANCER
     Route: 048
     Dates: start: 20180711, end: 20190305
  7. FLIVAS [Concomitant]
     Active Substance: NAFTOPIDIL
     Indication: BENIGN PROSTATIC HYPERPLASIA
     Route: 048
     Dates: start: 20161219
  8. URSO [Concomitant]
     Active Substance: URSODIOL
     Route: 048
  9. IRESSA [Suspect]
     Active Substance: GEFITINIB
     Indication: NON-SMALL CELL LUNG CANCER
     Route: 048
     Dates: start: 20160212, end: 20180710

REACTIONS (7)
  - Pleural effusion [Unknown]
  - Pneumonia aspiration [Unknown]
  - Lung disorder [Recovering/Resolving]
  - Respiratory failure [Unknown]
  - Liver disorder [Unknown]
  - Acute respiratory distress syndrome [Recovering/Resolving]
  - Atrial fibrillation [Unknown]

NARRATIVE: CASE EVENT DATE: 20190226
